FAERS Safety Report 15509036 (Version 1)
Quarter: 2018Q4

REPORT INFORMATION
  Report Type: Spontaneous
  Country: US (occurrence: US)
  Receive Date: 20181016
  Receipt Date: 20181016
  Transmission Date: 20190205
  Serious: Yes (Death, Hospitalization)
  Sender: FDA-Public Use
  Company Number: None

PATIENT
  Age: 69 Year
  Sex: Male
  Weight: 61.2 kg

DRUGS (2)
  1. EDARAVONE [Suspect]
     Active Substance: EDARAVONE
     Indication: AMYOTROPHIC LATERAL SCLEROSIS
     Dosage: 60 MG QD-14 DAYS/MONTH INTRAVENOUS DRIP
     Route: 041
     Dates: start: 20180116, end: 20180216
  2. RILUZOLE. [Concomitant]
     Active Substance: RILUZOLE
     Dates: start: 20171001, end: 20180216

REACTIONS (3)
  - Abdominal distension [None]
  - Hyponatraemia [None]
  - Respiratory failure [None]

NARRATIVE: CASE EVENT DATE: 20180216
